FAERS Safety Report 23204887 (Version 1)
Quarter: 2023Q4

REPORT INFORMATION
  Report Type: Spontaneous
  Country: PT (occurrence: None)
  Receive Date: 20231120
  Receipt Date: 20231120
  Transmission Date: 20240109
  Serious: Yes (Death, Other)
  Sender: FDA-Public Use
  Company Number: 2023A262632

PATIENT
  Age: 64 Year
  Sex: Male

DRUGS (4)
  1. OLAPARIB [Suspect]
     Active Substance: OLAPARIB
     Indication: Prostate cancer stage IV
     Dosage: 300 MILLIGRAM, BID
     Route: 048
     Dates: start: 20211217, end: 20220111
  2. OLAPARIB [Suspect]
     Active Substance: OLAPARIB
     Indication: Hormone-refractory prostate cancer
     Dosage: 300 MILLIGRAM, BID
     Route: 048
     Dates: start: 20211217, end: 20220111
  3. OLAPARIB [Suspect]
     Active Substance: OLAPARIB
     Indication: Prostate cancer stage IV
     Dosage: 250 MILLIGRAM, BID
     Route: 048
     Dates: start: 20220118, end: 20220914
  4. OLAPARIB [Suspect]
     Active Substance: OLAPARIB
     Indication: Hormone-refractory prostate cancer
     Dosage: 250 MILLIGRAM, BID
     Route: 048
     Dates: start: 20220118, end: 20220914

REACTIONS (4)
  - Malignant neoplasm progression [Fatal]
  - Anaemia [Unknown]
  - Asthenia [Unknown]
  - Monocyte count abnormal [Unknown]

NARRATIVE: CASE EVENT DATE: 20220111
